FAERS Safety Report 7768513-2 (Version None)
Quarter: 2011Q3

REPORT INFORMATION
  Report Type: 
  Country: None (occurrence: None)
  Receive Date: 20110922
  Receipt Date: 20100908
  Transmission Date: 20111222
  Serious: No
  Sender: FDA-Public Use
  Company Number: US-ASTRAZENECA-2010SE42246

PATIENT
  Age: 50 Year
  Sex: Female
  Weight: 67.1 kg

DRUGS (3)
  1. CLONAZEPAM [Concomitant]
     Route: 048
  2. SEROQUEL [Suspect]
     Route: 048
  3. SEROQUEL [Suspect]
     Indication: BIPOLAR DISORDER
     Route: 048

REACTIONS (3)
  - RENAL CYST [None]
  - BLOOD CHOLESTEROL INCREASED [None]
  - CATARACT [None]
